FAERS Safety Report 6239414-6 (Version None)
Quarter: 2009Q2

REPORT INFORMATION
  Report Type: 
  Country: None (occurrence: None)
  Receive Date: 20090622
  Receipt Date: 20081013
  Transmission Date: 20091009
  Serious: Yes (Death, Hospitalization)
  Sender: FDA-Public Use
  Company Number: AU-CELGENEUS-AZAAU200800307

PATIENT
  Sex: Female
  Weight: 43 kg

DRUGS (2)
  1. VIDAZA [Suspect]
     Indication: MYELODYSPLASTIC SYNDROME
     Route: 058
     Dates: start: 20080825, end: 20080831
  2. THALIDOMIDE [Suspect]
     Indication: MYELODYSPLASTIC SYNDROME
     Route: 048
     Dates: start: 20080825, end: 20080909

REACTIONS (3)
  - ACUTE PULMONARY OEDEMA [None]
  - DYSPNOEA [None]
  - SEPSIS [None]
